FAERS Safety Report 4844112-7 (Version None)
Quarter: 2005Q4

REPORT INFORMATION
  Report Type: 
  Country: None (occurrence: None)
  Receive Date: 20051202
  Receipt Date: 20051122
  Transmission Date: 20060501
  Serious: Yes (Other)
  Sender: FDA-Public Use
  Company Number: DE-ROCHE-425779

PATIENT
  Sex: Female

DRUGS (2)
  1. TAMIFLU [Suspect]
     Indication: INFLUENZA
     Dosage: A TOTAL OF NINE CAPSULES WERE TAKEN BY THE PATIENT.
     Route: 065
  2. CARBAMAZEPINE [Concomitant]
     Indication: EPILEPSY
     Dates: start: 20020615

REACTIONS (1)
  - EPILEPSY [None]
